FAERS Safety Report 8485468 (Version 5)
Quarter: 2012Q4

REPORT INFORMATION
  Report Type: 
  Country: JP (occurrence: JP)
  Receive Date: 20120330
  Receipt Date: 20121213
  Transmission Date: 20130627
  Serious: Yes (Death)
  Sender: FDA-Public Use
  Company Number: JP-BRISTOL-MYERS SQUIBB COMPANY-16484271

PATIENT
  Age: 44 Year
  Sex: Female

DRUGS (1)
  1. ABILIFY TABS [Suspect]
     Indication: SCHIZOPHRENIA
     Route: 048
     Dates: start: 201102

REACTIONS (1)
  - Circulatory collapse [Fatal]
